FAERS Safety Report 13066715 (Version 1)
Quarter: 2016Q4

REPORT INFORMATION
  Report Type: Spontaneous
  Country: DE (occurrence: DE)
  Receive Date: 20161227
  Receipt Date: 20161227
  Transmission Date: 20170207
  Serious: Yes (Congenital Anomaly)
  Sender: FDA-Public Use
  Company Number: DE-PFIZER INC-2016595895

PATIENT
  Sex: Male
  Weight: 2.9 kg

DRUGS (2)
  1. VENLAFAXINE HCL [Suspect]
     Active Substance: VENLAFAXINE HYDROCHLORIDE
     Indication: DEPRESSION
     Dosage: 150 MG, 1X/DAY; 0. - 38.2. GESTATIONAL WEEK
     Route: 064
     Dates: start: 20151023, end: 20160717
  2. VITAVERLAN [Concomitant]
     Indication: PROPHYLAXIS OF NEURAL TUBE DEFECT
     Dosage: 0.4 MG, 1X/DAY; 1 TRIMESTER, 4.1. - 4.6. GESTATIONAL WEEK
     Route: 064
     Dates: start: 20151121, end: 20151126

REACTIONS (5)
  - Ureteric stenosis [Not Recovered/Not Resolved]
  - Urinary tract disorder [Not Recovered/Not Resolved]
  - Congenital ureterocele [Not Recovered/Not Resolved]
  - Congenital megaureter [Not Recovered/Not Resolved]
  - Hydronephrosis [Not Recovered/Not Resolved]
